FAERS Safety Report 25386314 (Version 1)
Quarter: 2025Q2

REPORT INFORMATION
  Report Type: Spontaneous
  Country: US (occurrence: None)
  Receive Date: 20250602
  Receipt Date: 20250602
  Transmission Date: 20250716
  Serious: No
  Sender: FDA-CTU
  Company Number: None

PATIENT
  Age: 32 Month
  Sex: Male
  Weight: 16.65 kg

DRUGS (2)
  1. VTAMA [Suspect]
     Active Substance: TAPINAROF
     Indication: Eczema
     Dosage: OTHER QUANTITY : 1 TUBE;?FREQUENCY : DAILY;?
     Route: 061
     Dates: start: 20250601
  2. CHILDRENS ZYRTEC [Concomitant]
     Active Substance: CETIRIZINE HYDROCHLORIDE

REACTIONS (3)
  - Erythema [None]
  - Blister [None]
  - Application site pain [None]

NARRATIVE: CASE EVENT DATE: 20250602
